FAERS Safety Report 4357567-1 (Version None)
Quarter: 2004Q2

REPORT INFORMATION
  Report Type: 
  Country: None (occurrence: None)
  Receive Date: 20040512
  Receipt Date: 20040512
  Transmission Date: 20050107
  Serious: Yes (Other)
  Sender: FDA-Public Use
  Company Number: None

PATIENT
  Age: 36 Year
  Sex: Female
  Weight: 78.0187 kg

DRUGS (2)
  1. ALKA SELTZER FAST RELEIF EFFERVESCENT ANTACID AND PAIN RELIEF [Suspect]
     Indication: DYSPEPSIA
     Dosage: 2 TABLETS ONCE ORAL
     Route: 048
     Dates: start: 20040510, end: 20040511
  2. ALKA SELTZER FAST RELEIF EFFERVESCENT ANTACID AND PAIN RELIEF [Suspect]
     Indication: STOMACH DISCOMFORT
     Dosage: 2 TABLETS ONCE ORAL
     Route: 048
     Dates: start: 20040510, end: 20040511

REACTIONS (2)
  - EYELID OEDEMA [None]
  - URTICARIA [None]
